FAERS Safety Report 6369255-0 (Version None)
Quarter: 2009Q3

REPORT INFORMATION
  Report Type: 
  Country: None (occurrence: None)
  Receive Date: 20090916
  Receipt Date: 20090908
  Transmission Date: 20100115
  Serious: Yes (Other)
  Sender: FDA-Public Use
  Company Number: ADR20642009

PATIENT

DRUGS (2)
  1. SERTRALINE HCL [Suspect]
     Indication: DEPRESSION
     Dosage: 150MG TRANSPLACENTAL
     Route: 064
  2. ABILIFY [Concomitant]

REACTIONS (4)
  - ABORTION INDUCED [None]
  - FOETAL CHROMOSOME ABNORMALITY [None]
  - FOETAL MALFORMATION [None]
  - MATERNAL DRUGS AFFECTING FOETUS [None]
